FAERS Safety Report 7371619-3 (Version None)
Quarter: 2011Q1

REPORT INFORMATION
  Report Type: 
  Country: None (occurrence: None)
  Receive Date: 20110324
  Receipt Date: 20110322
  Transmission Date: 20110831
  Serious: Yes (Hospitalization)
  Sender: FDA-Public Use
  Company Number: FR-ABBOTT-10P-056-0670795-00

PATIENT
  Age: 43 Year
  Sex: Female

DRUGS (5)
  1. DEPAKENE [Suspect]
     Indication: EPILEPSY
     Dosage: 500 MG FORM STRENGTH
     Route: 048
  2. TRUVADA [Suspect]
     Indication: HIV INFECTION
  3. NORVIR [Suspect]
     Indication: HIV INFECTION
  4. CLONAZEPAM [Suspect]
     Indication: EPILEPSY
     Dates: start: 20100103, end: 20100103
  5. PREZISTA [Suspect]
     Indication: HIV INFECTION

REACTIONS (2)
  - PREMATURE LABOUR [None]
  - EPILEPSY [None]
